FAERS Safety Report 5866127-2 (Version None)
Quarter: 2008Q3

REPORT INFORMATION
  Report Type: 
  Country: None (occurrence: None)
  Receive Date: 20080829
  Receipt Date: 20080818
  Transmission Date: 20090109
  Serious: Yes (Other)
  Sender: FDA-Public Use
  Company Number: US-PFIZER INC-2008069699

PATIENT
  Sex: Female
  Weight: 124.7 kg

DRUGS (7)
  1. LYRICA [Suspect]
     Indication: NEURALGIA
     Dates: start: 20080709, end: 20080719
  2. ROBAXIN [Interacting]
     Indication: PAIN
  3. ADVIL LIQUI-GELS [Interacting]
     Indication: PAIN
  4. AVANDAMET [Concomitant]
  5. POTASSIUM CHLORIDE [Concomitant]
  6. HYDROCHLOROTHIAZIDE [Concomitant]
  7. ZOCOR [Concomitant]

REACTIONS (6)
  - BLOOD GLUCOSE INCREASED [None]
  - BLOOD PRESSURE INCREASED [None]
  - DRUG INTERACTION [None]
  - OEDEMA PERIPHERAL [None]
  - SOMNOLENCE [None]
  - THINKING ABNORMAL [None]
